FAERS Safety Report 8735343 (Version 2)
Quarter: 2012Q4

REPORT INFORMATION
  Report Type: 
  Country: JP (occurrence: US)
  Receive Date: 20120822
  Receipt Date: 20120925
  Transmission Date: 20130627
  Serious: Yes (Death, Hospitalization, Other)
  Sender: FDA-Public Use
  Company Number: US-RANBAXY-2011RR-41278

PATIENT
  Age: 65 Year
  Sex: Male

DRUGS (4)
  1. LEVOFLOXACIN [Suspect]
     Indication: OESOPHAGEAL PERFORATION
     Dosage: UNK
     Route: 042
  2. VANCOMYCIN [Suspect]
     Indication: OESOPHAGEAL PERFORATION
     Dosage: UNK
     Route: 042
  3. METRONIDAZOLE [Suspect]
     Indication: OESOPHAGEAL PERFORATION
     Dosage: UNK
     Route: 042
  4. FLUCONAZOLE [Suspect]
     Indication: OESOPHAGEAL PERFORATION
     Dosage: UNK
     Route: 042

REACTIONS (6)
  - Drug reaction with eosinophilia and systemic symptoms [Recovered/Resolved]
  - Multi-organ failure [Recovered/Resolved]
  - Rash pruritic [Recovered/Resolved]
  - Rash morbilliform [Recovered/Resolved]
  - Eosinophilia [Recovering/Resolving]
  - Metabolic acidosis [Recovered/Resolved]
